FAERS Safety Report 6444115-5 (Version None)
Quarter: 2009Q4

REPORT INFORMATION
  Report Type: 
  Country: None (occurrence: None)
  Receive Date: 20091118
  Receipt Date: 20091105
  Transmission Date: 20100525
  Serious: Yes (Hospitalization)
  Sender: FDA-Public Use
  Company Number: US-JNJFOC-20091104442

PATIENT
  Sex: Male

DRUGS (10)
  1. EXTRA STRENGTH TYLENOL [Suspect]
  2. EXTRA STRENGTH TYLENOL [Suspect]
     Indication: CHEST PAIN
     Dosage: 5000MG EVERY ONE TO TWO HOURS, TOTAL OF 25000 MG IN 10 HOURS
  3. GEODON [Concomitant]
     Dosage: AT NIGHT
  4. GEODON [Concomitant]
     Dosage: Q AM
  5. EFFEXOR XR [Concomitant]
  6. LAMICTAL [Concomitant]
     Route: 048
  7. HYDROCODONE [Concomitant]
     Dosage: 10/325 EVERY FOURS HOURS AS NEEDED
  8. MEDIGESIC [Concomitant]
     Indication: PAIN
  9. ATENOLOL [Concomitant]
     Route: 048
  10. XANAX [Concomitant]
     Indication: ANXIETY
     Dosage: 1 MG EVERY 4 HOURS AS NEEDED

REACTIONS (7)
  - HEPATITIS [None]
  - HYPOKALAEMIA [None]
  - LEUKOCYTOSIS [None]
  - METABOLIC ACIDOSIS [None]
  - NAUSEA [None]
  - OVERDOSE [None]
  - VOMITING [None]
